FAERS Safety Report 17118441 (Version 5)
Quarter: 2022Q3

REPORT INFORMATION
  Report Type: Report from Study
  Country: NL (occurrence: NL)
  Receive Date: 20191205
  Receipt Date: 20220721
  Transmission Date: 20221026
  Serious: Yes (Hospitalization, Other)
  Sender: FDA-Public Use
  Company Number: NL-ABBVIE-19S-114-2766480-00

PATIENT
  Sex: Male
  Weight: 60 kg

DRUGS (4)
  1. CARBIDOPA\LEVODOPA [Suspect]
     Active Substance: CARBIDOPA\LEVODOPA
     Indication: Parkinson^s disease
     Dosage: MD: 9.0, CD: 2.9, ED: 4.0?16 HOUR ADMINISTRATION
     Route: 050
     Dates: start: 20170220
  2. CARBIDOPA\LEVODOPA [Suspect]
     Active Substance: CARBIDOPA\LEVODOPA
     Dosage: MD: 9.0 ML, CD: 2.9 ML/H, ED: 4.0 ML; REMAINS AT 16 HOURS
     Route: 050
  3. CARBIDOPA\LEVODOPA [Suspect]
     Active Substance: CARBIDOPA\LEVODOPA
     Dosage: MD: 9.0 ML, CD: 3.2 ML/H, ED: 4.0 ML
     Route: 050
  4. CARBIDOPA\LEVODOPA [Suspect]
     Active Substance: CARBIDOPA\LEVODOPA
     Dosage: MD 9.0 ML; CD 3.0 ML/H; ED 4.0 ML
     Route: 050

REACTIONS (18)
  - Intestinal haemorrhage [Recovered/Resolved]
  - Abnormal faeces [Not Recovered/Not Resolved]
  - Memory impairment [Not Recovered/Not Resolved]
  - Weight decreased [Recovered/Resolved]
  - Abnormal dreams [Not Recovered/Not Resolved]
  - Weight decreased [Not Recovered/Not Resolved]
  - Tremor [Recovering/Resolving]
  - Dyskinesia [Not Recovered/Not Resolved]
  - Muscle rigidity [Not Recovered/Not Resolved]
  - Device effect variable [Not Recovered/Not Resolved]
  - On and off phenomenon [Not Recovered/Not Resolved]
  - Unevaluable event [Recovered/Resolved]
  - Unevaluable event [Not Recovered/Not Resolved]
  - Hallucination, visual [Not Recovered/Not Resolved]
  - On and off phenomenon [Not Recovered/Not Resolved]
  - Parkinson^s disease [Not Recovered/Not Resolved]
  - Freezing phenomenon [Not Recovered/Not Resolved]
  - Dyskinesia [Unknown]

NARRATIVE: CASE EVENT DATE: 20190101
